FAERS Safety Report 11736370 (Version 1)
Quarter: 2015Q4

REPORT INFORMATION
  Report Type: Spontaneous
  Country: US (occurrence: US)
  Receive Date: 20151113
  Receipt Date: 20151113
  Transmission Date: 20160304
  Serious: No
  Sender: FDA-Public Use
  Company Number: US-JNJFOC-20150925846

PATIENT
  Sex: Female

DRUGS (6)
  1. VITAMIN D [Concomitant]
     Active Substance: CHOLECALCIFEROL
     Route: 065
  2. METHOTREXATE [Concomitant]
     Active Substance: METHOTREXATE
     Route: 065
  3. FOLIC ACID. [Concomitant]
     Active Substance: FOLIC ACID
     Route: 065
  4. GABAPENTINE [Concomitant]
     Active Substance: GABAPENTIN
     Route: 065
  5. REMICADE [Suspect]
     Active Substance: INFLIXIMAB
     Indication: INFLAMMATION
     Route: 042
     Dates: end: 2014
  6. REMICADE [Suspect]
     Active Substance: INFLIXIMAB
     Indication: SPONDYLOARTHROPATHY
     Route: 042
     Dates: end: 2014

REACTIONS (3)
  - Product use issue [Unknown]
  - Vasculitis [Unknown]
  - Rash [Unknown]
